FAERS Safety Report 7308345-2 (Version None)
Quarter: 2011Q1

REPORT INFORMATION
  Report Type: 
  Country: None (occurrence: None)
  Receive Date: 20110223
  Receipt Date: 20110216
  Transmission Date: 20110831
  Serious: Yes (Death, Congenital Anomaly)
  Sender: FDA-Public Use
  Company Number: B0700212B

PATIENT

DRUGS (2)
  1. SPECIAFOLDINE [Concomitant]
     Route: 064
  2. LAMICTAL [Suspect]
     Indication: EPILEPSY
     Route: 064

REACTIONS (3)
  - NEURAL TUBE DEFECT [None]
  - CONGENITAL CENTRAL NERVOUS SYSTEM ANOMALY [None]
  - DRUG EXPOSURE DURING PREGNANCY [None]
